FAERS Safety Report 9168128 (Version 1)
Quarter: 2013Q1

REPORT INFORMATION
  Report Type: Spontaneous
  Country: JP (occurrence: JP)
  Receive Date: 20130318
  Receipt Date: 20130318
  Transmission Date: 20140127
  Serious: Yes (Other)
  Sender: FDA-Public Use
  Company Number: JP-ASTELLAS-2013JP003918

PATIENT
  Age: 3 Month
  Sex: 0

DRUGS (2)
  1. PROTOPIC [Suspect]
     Indication: ECZEMA INFANTILE
     Dosage: 0.03 %, UNK
     Route: 061
     Dates: start: 20130214, end: 20130306
  2. LOCOID [Concomitant]
     Indication: ECZEMA INFANTILE
     Route: 061

REACTIONS (3)
  - Off label use [Unknown]
  - Skin erosion [Unknown]
  - Purulence [Unknown]
